FAERS Safety Report 7248908-6 (Version None)
Quarter: 2011Q1

REPORT INFORMATION
  Report Type: 
  Country: None (occurrence: None)
  Receive Date: 20110128
  Receipt Date: 20100527
  Transmission Date: 20110831
  Serious: Yes (Other)
  Sender: FDA-Public Use
  Company Number: US-BAYER-201024820NA

PATIENT
  Sex: Female
  Weight: 86.168 kg

DRUGS (8)
  1. DARVOCET-N 100 [Concomitant]
     Dosage: UNK
     Dates: start: 20080121
  2. HYDROXYZINE [Concomitant]
     Dosage: UNK
     Dates: start: 20080121
  3. VITAMINS NOS [Concomitant]
     Dosage: UNK UNK, QD
     Route: 048
  4. ELMIRON [Concomitant]
     Dosage: UNK
     Dates: start: 20080121
  5. OCELLA [Suspect]
     Indication: ORAL CONTRACEPTION
     Route: 048
  6. SARAFEM [Concomitant]
     Dosage: UNK
     Dates: start: 20080121
  7. YASMIN [Suspect]
     Indication: ORAL CONTRACEPTION
     Route: 048
  8. LEVONORGESTREL + ETHINYL ESTRADIOL [Concomitant]
     Route: 048

REACTIONS (4)
  - POLLAKIURIA [None]
  - CYSTITIS INTERSTITIAL [None]
  - GALLBLADDER DISORDER [None]
  - BLADDER PAIN [None]
